FAERS Safety Report 25565060 (Version 1)
Quarter: 2025Q3

REPORT INFORMATION
  Report Type: Spontaneous
  Country: EU (occurrence: EU)
  Receive Date: 20250716
  Receipt Date: 20250716
  Transmission Date: 20251021
  Serious: Yes (Death, Hospitalization, Other)
  Sender: AUROBINDO
  Company Number: EU-AFSSAPS-NY2025000963

PATIENT
  Age: 76 Year
  Sex: Male
  Weight: 90.5 kg

DRUGS (14)
  1. CAPECITABINE [Suspect]
     Active Substance: CAPECITABINE
     Indication: Colon cancer
     Dosage: 1650 MILLIGRAM, TWO TIMES A DAY
     Route: 048
     Dates: start: 2024, end: 20241118
  2. CAPECITABINE [Suspect]
     Active Substance: CAPECITABINE
     Dosage: 2000 MILLIGRAM, TWO TIMES A DAY
     Route: 048
     Dates: start: 202406, end: 2024
  3. CAPECITABINE [Suspect]
     Active Substance: CAPECITABINE
     Dosage: 1300 MILLIGRAM, TWO TIMES A DAY
     Route: 048
     Dates: start: 20241118, end: 20241201
  4. OXALIPLATIN [Suspect]
     Active Substance: OXALIPLATIN
     Indication: Colon cancer
     Route: 042
     Dates: start: 202406, end: 20241118
  5. AMLODIPINE BESYLATE [Concomitant]
     Active Substance: AMLODIPINE BESYLATE
     Indication: Hypertension
     Dosage: 10 MILLIGRAM, ONCE A DAY
     Route: 048
  6. CANDESARTAN CILEXETIL [Concomitant]
     Active Substance: CANDESARTAN CILEXETIL
     Indication: Hypertension
     Dosage: 8 MILLIGRAM, ONCE A DAY
     Route: 048
  7. FUROSEMIDE [Concomitant]
     Active Substance: FUROSEMIDE
     Indication: Hypertension
     Dosage: 40 MILLIGRAM, ONCE A DAY
     Route: 048
  8. INNOHEP [Concomitant]
     Active Substance: TINZAPARIN SODIUM
     Indication: Deep vein thrombosis
     Dosage: 1 DOSAGE FORM, ONCE A DAY
     Route: 058
     Dates: start: 20241008
  9. JANUMET XR [Concomitant]
     Active Substance: METFORMIN HYDROCHLORIDE\SITAGLIPTIN PHOSPHATE
     Indication: Diabetes mellitus
     Dosage: 1 DOSAGE FORM, TWO TIMES A DAY
     Route: 048
  10. POTASSIUM CHLORIDE [Concomitant]
     Active Substance: POTASSIUM CHLORIDE
     Indication: Hypokalaemia
     Dosage: 1000 MILLIGRAM, 3 TIMES A DAY
     Route: 048
  11. KARDEGIC [Concomitant]
     Active Substance: ASPIRIN DL-LYSINE
     Indication: Cardiovascular event prophylaxis
     Dosage: 75 MILLIGRAM, ONCE A DAY
     Route: 048
  12. LIORESAL [Concomitant]
     Active Substance: BACLOFEN
     Indication: Medullary compression syndrome
     Dosage: 60 MILLIGRAM, ONCE A DAY
     Route: 048
  13. POLYETHYLENE GLYCOL 4000 [Concomitant]
     Active Substance: POLYETHYLENE GLYCOL 4000
     Indication: Constipation
     Route: 048
  14. GLYCOPYRRONIUM\INDACATEROL [Concomitant]
     Active Substance: GLYCOPYRRONIUM\INDACATEROL
     Indication: Chronic obstructive pulmonary disease
     Dosage: 1 DOSAGE FORM, ONCE A DAY
     Route: 048

REACTIONS (1)
  - Cutaneous vasculitis [Fatal]

NARRATIVE: CASE EVENT DATE: 20241120
